FAERS Safety Report 16894479 (Version 1)
Quarter: 2019Q4

REPORT INFORMATION
  Report Type: Spontaneous
  Country: US (occurrence: US)
  Receive Date: 20191008
  Receipt Date: 20191008
  Transmission Date: 20200122
  Serious: No
  Sender: FDA-Public Use
  Company Number: US-INDIVIOR US-INDV-114357-2018

PATIENT
  Age: 47 Year
  Sex: Male

DRUGS (5)
  1. BUPRENORPHINE TABLET [Suspect]
     Active Substance: BUPRENORPHINE
     Dosage: 4 MG, A DAY
     Route: 065
  2. BUPRENORPHINE TABLET [Suspect]
     Active Substance: BUPRENORPHINE
     Dosage: MAXIMUM 2 MG A DAY BUT SOMETIMES MICRODOSE TO 1 MG A DAY
     Route: 065
  3. SUBOXONE [Suspect]
     Active Substance: BUPRENORPHINE HYDROCHLORIDE\NALOXONE HYDROCHLORIDE
     Indication: PRODUCT USED FOR UNKNOWN INDICATION
     Dosage: UNKNOWN, FOR ABOUT 10 YEARS
     Route: 065
     Dates: end: 2017
  4. BUPRENORPHINE TABLET [Suspect]
     Active Substance: BUPRENORPHINE
     Indication: PRODUCT USED FOR UNKNOWN INDICATION
     Dosage: 4-8 MG A DAY
     Route: 065
  5. BUPRENORPHINE TABLET [Suspect]
     Active Substance: BUPRENORPHINE
     Dosage: UNKNOWN, HALF OF TABLET, HALF A QUARTER
     Route: 065

REACTIONS (19)
  - Agoraphobia [Unknown]
  - Nervous system disorder [Unknown]
  - Drug dependence [Unknown]
  - Constipation [Not Recovered/Not Resolved]
  - Stress [Not Recovered/Not Resolved]
  - Unevaluable event [Unknown]
  - Feeling abnormal [Not Recovered/Not Resolved]
  - Drug withdrawal syndrome [Recovered/Resolved]
  - Pain [Not Recovered/Not Resolved]
  - Wrong technique in product usage process [Unknown]
  - Hyperhidrosis [Not Recovered/Not Resolved]
  - Intentional underdose [Unknown]
  - Adverse event [Unknown]
  - Abdominal discomfort [Not Recovered/Not Resolved]
  - Mental impairment [Not Recovered/Not Resolved]
  - Discomfort [Not Recovered/Not Resolved]
  - Product dose omission [Recovered/Resolved]
  - Hot flush [Not Recovered/Not Resolved]
  - Depression [Not Recovered/Not Resolved]
